FAERS Safety Report 10007313 (Version 1)
Quarter: 2014Q1

REPORT INFORMATION
  Report Type: Spontaneous
  Country: ES (occurrence: ES)
  Receive Date: 20140313
  Receipt Date: 20140313
  Transmission Date: 20141002
  Serious: Yes (Other)
  Sender: FDA-Public Use
  Company Number: ES-TEVA-466282ISR

PATIENT
  Age: 83 Year
  Sex: Female

DRUGS (5)
  1. ACIDO ALENDRONICO TEVA 70 MG COMP EFG 4 COMP [Suspect]
     Indication: OSTEOPOROSIS
     Route: 048
     Dates: start: 20100218, end: 20130128
  2. AMLODIPINE [Concomitant]
     Indication: HYPERTENSION
     Dosage: 5 MILLIGRAM DAILY;
     Route: 048
  3. IRBESARTAN [Concomitant]
     Indication: HYPERTENSION
     Dosage: 300 MILLIGRAM DAILY;
     Route: 048
  4. PRAVASTATIN [Concomitant]
     Indication: HYPERTENSION
     Dosage: 40 MILLIGRAM DAILY;
     Route: 048
  5. HYDROCHLOROTHIAZIDE [Concomitant]
     Indication: HYPERTENSION
     Dosage: 25 MILLIGRAM DAILY;
     Route: 048

REACTIONS (1)
  - Atrial flutter [Recovered/Resolved]
